FAERS Safety Report 5562761-8 (Version None)
Quarter: 2007Q4

REPORT INFORMATION
  Report Type: 
  Country: None (occurrence: None)
  Receive Date: 20071211
  Receipt Date: 20071211
  Transmission Date: 20080405
  Serious: Yes (Life-Threatening, Hospitalization)
  Sender: FDA-Public Use
  Company Number: None

PATIENT
  Age: 49 Year
  Sex: Female
  Weight: 81.1939 kg

DRUGS (2)
  1. BYETTA [Suspect]
     Indication: BLOOD GLUCOSE INCREASED
     Dosage: 1 DOSE  ONCE A DAY  SQ
     Route: 058
     Dates: start: 20071115, end: 20071126
  2. METFORMIN HCL ER [Concomitant]

REACTIONS (1)
  - HYPERSENSITIVITY [None]
